FAERS Safety Report 9203960 (Version 1)
Quarter: 2013Q2

REPORT INFORMATION
  Report Type: Spontaneous
  Country: US (occurrence: US)
  Receive Date: 20130402
  Receipt Date: 20130402
  Transmission Date: 20140414
  Serious: No
  Sender: FDA-Public Use
  Company Number: US-VERTEX PHARMACEUTICALS INC.-2013-004280

PATIENT
  Age: 47 Year
  Sex: Male

DRUGS (1)
  1. INCIVEK [Suspect]
     Indication: HEPATITIS C
     Dosage: UNK
     Route: 048

REACTIONS (7)
  - Adverse event [Not Recovered/Not Resolved]
  - Depression [Unknown]
  - Headache [Unknown]
  - Pyrexia [Unknown]
  - Chills [Unknown]
  - Lethargy [Unknown]
  - Urticaria [Unknown]
